FAERS Safety Report 7419478-4 (Version None)
Quarter: 2011Q1

REPORT INFORMATION
  Report Type: 
  Country: None (occurrence: None)
  Receive Date: 20110302
  Receipt Date: 20101027
  Transmission Date: 20110831
  Serious: No
  Sender: FDA-Public Use
  Company Number: 021274

PATIENT
  Sex: Female
  Weight: 76.2 kg

DRUGS (11)
  1. BONIVA [Concomitant]
  2. METHOTREXATE [Concomitant]
  3. MAGNESIUM OXIDE [Concomitant]
  4. VITAMIN B-12 [Concomitant]
  5. VITAMIN D [Concomitant]
  6. PREVACID [Concomitant]
  7. PROZAC [Concomitant]
  8. SPIRONOLACTONE [Concomitant]
  9. CIMZIA [Suspect]
     Indication: CROHN'S DISEASE
     Dosage: 400 MG 1X/28 DAYS SUBCUTANEOUS
     Route: 058
     Dates: start: 20100620
  10. CALCIUM [Concomitant]
  11. DIOVAN [Concomitant]

REACTIONS (2)
  - MALAISE [None]
  - SINUSITIS [None]
